FAERS Safety Report 6664662-0 (Version None)
Quarter: 2010Q1

REPORT INFORMATION
  Report Type: 
  Country: None (occurrence: None)
  Receive Date: 20100329
  Receipt Date: 20100315
  Transmission Date: 20100710
  Serious: Yes (Hospitalization)
  Sender: FDA-Public Use
  Company Number: 2009S1000455-005

PATIENT
  Age: 61 Year
  Sex: Female

DRUGS (7)
  1. SK-0403 OR PLACEBO [Suspect]
     Indication: TYPE 2 DIABETES MELLITUS
     Dosage: 100MG OR PLACEBO;BID, PO
     Route: 048
     Dates: start: 20091105, end: 20091223
  2. SK-0403 OR PLACEBO [Suspect]
     Indication: TYPE 2 DIABETES MELLITUS
     Dosage: 100MG OR PLACEBO;BID, PO
     Route: 048
     Dates: start: 20091229, end: 20100204
  3. SK-0403 [Suspect]
     Indication: TYPE 2 DIABETES MELLITUS
     Dosage: 100MG;BID, PO
     Route: 048
     Dates: start: 20100204
  4. LIVALO KOWA (PITAVASTATIN) [Concomitant]
  5. ACTOS [Concomitant]
  6. BONALON (ALENDRONATE SODIUM HYDRATE) [Concomitant]
  7. CALCITRIOL [Concomitant]

REACTIONS (3)
  - FALL [None]
  - HAEMARTHROSIS [None]
  - PATELLA FRACTURE [None]
